FAERS Safety Report 17746134 (Version 3)
Quarter: 2020Q3

REPORT INFORMATION
  Report Type: Spontaneous
  Country: US (occurrence: US)
  Receive Date: 20200505
  Receipt Date: 20200916
  Transmission Date: 20201102
  Serious: Yes (Other)
  Sender: FDA-Public Use
  Company Number: US-PFIZER INC-2019253445

PATIENT
  Age: 78 Year
  Sex: Female
  Weight: 77 kg

DRUGS (8)
  1. CELEBREX [Suspect]
     Active Substance: CELECOXIB
     Indication: OSTEOARTHRITIS
     Dosage: 200 MG, 2X/DAY
     Route: 048
  2. LISINOPRIL. [Concomitant]
     Active Substance: LISINOPRIL
     Indication: HYPERTENSION
     Dosage: 40 MG, 2X/DAY
     Route: 048
  3. METOPROLOL TARTRATE. [Concomitant]
     Active Substance: METOPROLOL TARTRATE
     Indication: HYPERTENSION
     Dosage: 50 MG, 1X/DAY
     Route: 048
  4. CELEBREX [Suspect]
     Active Substance: CELECOXIB
     Indication: PAIN
  5. SPIRONOLACTONE. [Concomitant]
     Active Substance: SPIRONOLACTONE
     Indication: CARDIAC DISORDER
     Dosage: UNK, 2X/DAY
     Route: 048
  6. OXYBUTYNIN. [Concomitant]
     Active Substance: OXYBUTYNIN CHLORIDE
     Indication: INCONTINENCE
     Dosage: 5 MG, 2X/DAY
     Route: 048
  7. CELEBREX [Suspect]
     Active Substance: CELECOXIB
     Indication: ARTHRITIS
  8. ROSUVASTATIN. [Concomitant]
     Active Substance: ROSUVASTATIN
     Indication: BLOOD CHOLESTEROL DECREASED
     Dosage: 5 MG, 1X/DAY
     Route: 048
     Dates: start: 2020

REACTIONS (1)
  - Thrombosis [Unknown]
